FAERS Safety Report 8007956-9 (Version None)
Quarter: 2011Q4

REPORT INFORMATION
  Report Type: 
  Country: None (occurrence: None)
  Receive Date: 20111227
  Receipt Date: 20111213
  Transmission Date: 20120403
  Serious: Yes (Hospitalization)
  Sender: FDA-Public Use
  Company Number: US-ELI_LILLY_AND_COMPANY-US201107001434

PATIENT
  Sex: Female
  Weight: 39 kg

DRUGS (5)
  1. FORTEO [Suspect]
     Dosage: 20 UG, QD
     Route: 058
  2. FORTEO [Suspect]
     Indication: OSTEOPOROSIS
     Dosage: 20 UG, QD
     Route: 058
     Dates: start: 20110601
  3. FIORICET [Concomitant]
  4. FORTEO [Suspect]
     Dosage: 20 UG, QD
     Route: 058
  5. FORTEO [Suspect]
     Dosage: 20 UG, QD
     Route: 058

REACTIONS (14)
  - HYPOKINESIA [None]
  - NASOPHARYNGITIS [None]
  - BIPOLAR DISORDER [None]
  - CONTUSION [None]
  - NERVOUS SYSTEM DISORDER [None]
  - FATIGUE [None]
  - MALAISE [None]
  - ASTHENIA [None]
  - CONSTIPATION [None]
  - OVERDOSE [None]
  - FEELING ABNORMAL [None]
  - HEADACHE [None]
  - INJECTION SITE HAEMATOMA [None]
  - LIMB INJURY [None]
